FAERS Safety Report 19438309 (Version 1)
Quarter: 2021Q2

REPORT INFORMATION
  Report Type: Spontaneous
  Country: JP (occurrence: JP)
  Receive Date: 20210619
  Receipt Date: 20210619
  Transmission Date: 20210717
  Serious: Yes (Life-Threatening)
  Sender: FDA-Public Use
  Company Number: JP-ALVOGEN-2021-ALVOGEN-117106

PATIENT
  Age: 23 Year
  Sex: Male

DRUGS (5)
  1. PIPERACILLIN SODIUM [Suspect]
     Active Substance: PIPERACILLIN SODIUM
     Indication: STAPHYLOCOCCAL INFECTION
  2. CLINDAMYCIN. [Suspect]
     Active Substance: CLINDAMYCIN
     Indication: STAPHYLOCOCCAL INFECTION
     Route: 042
  3. IMIPENEM [Suspect]
     Active Substance: IMIPENEM
     Indication: STAPHYLOCOCCAL INFECTION
     Route: 042
  4. CEFOZOPRAN HYDROCHLORIDE [Suspect]
     Active Substance: CEFOZOPRAN HYDROCHLORIDE
     Indication: STAPHYLOCOCCAL INFECTION
  5. CILASTATIN SODIUM [Suspect]
     Active Substance: CILASTATIN SODIUM
     Indication: STAPHYLOCOCCAL INFECTION
     Route: 042

REACTIONS (1)
  - Drug ineffective [Unknown]
